FAERS Safety Report 4753869-5 (Version None)
Quarter: 2005Q3

REPORT INFORMATION
  Report Type: 
  Country: None (occurrence: None)
  Receive Date: 20050826
  Receipt Date: 20050823
  Transmission Date: 20060218
  Serious: Yes (Hospitalization)
  Sender: FDA-Public Use
  Company Number: FR-GLAXOSMITHKLINE-B0391578A

PATIENT
  Age: 41 Year
  Sex: Female

DRUGS (2)
  1. CLAMOXYL [Suspect]
     Indication: SUPERINFECTION LUNG
     Route: 048
     Dates: start: 20050510, end: 20050513
  2. SOLU-MEDROL [Concomitant]
     Indication: SUPERINFECTION LUNG
     Route: 048
     Dates: start: 20050510

REACTIONS (10)
  - ALANINE AMINOTRANSFERASE INCREASED [None]
  - DRUG RASH WITH EOSINOPHILIA AND SYSTEMIC SYMPTOMS [None]
  - EOSINOPHIL COUNT INCREASED [None]
  - FACE OEDEMA [None]
  - GAMMA-GLUTAMYLTRANSFERASE INCREASED [None]
  - INFLAMMATION [None]
  - NEUTROPHIL COUNT INCREASED [None]
  - OEDEMA PERIPHERAL [None]
  - RASH MACULAR [None]
  - RENAL FAILURE [None]
